FAERS Safety Report 22057316 (Version 2)
Quarter: 2023Q2

REPORT INFORMATION
  Report Type: Spontaneous
  Country: US (occurrence: US)
  Receive Date: 20230303
  Receipt Date: 20230416
  Transmission Date: 20230721
  Serious: No
  Sender: FDA-Public Use
  Company Number: US-JNJFOC-20230301043

PATIENT
  Age: 54 Year
  Sex: Female
  Weight: 90.800 kg

DRUGS (1)
  1. TREMFYA [Suspect]
     Active Substance: GUSELKUMAB
     Indication: Psoriasis
     Route: 065
     Dates: start: 20230110

REACTIONS (5)
  - Wrong technique in product usage process [Unknown]
  - Device issue [Unknown]
  - Accidental exposure to product [Unknown]
  - Underdose [Unknown]
  - Injection site haemorrhage [Unknown]
